FAERS Safety Report 10695846 (Version 4)
Quarter: 2015Q1

REPORT INFORMATION
  Report Type: Spontaneous
  Country: GB (occurrence: GB)
  Receive Date: 20150107
  Receipt Date: 20150326
  Transmission Date: 20150721
  Serious: Yes (Death, Hospitalization, Other)
  Sender: FDA-Public Use
  Company Number: GB-PFIZER INC-2015000866

PATIENT
  Age: 46 Year
  Sex: Male

DRUGS (6)
  1. ZAPONEX [Suspect]
     Active Substance: CLOZAPINE
     Dosage: UNK
     Route: 048
     Dates: start: 20090306, end: 20090703
  2. OLANZAPINE. [Concomitant]
     Active Substance: OLANZAPINE
     Indication: SCHIZOPHRENIA, PARANOID TYPE
     Dosage: UNK
  3. SUNITINIB MALATE [Suspect]
     Active Substance: SUNITINIB MALATE
     Indication: METASTATIC RENAL CELL CARCINOMA
     Dosage: UNK, CYCLIC
     Dates: start: 2014
  4. ZAPONEX [Suspect]
     Active Substance: CLOZAPINE
     Indication: SCHIZOPHRENIA, PARANOID TYPE
     Dosage: UNK
     Route: 048
     Dates: start: 20070309, end: 20081217
  5. ZAPONEX [Suspect]
     Active Substance: CLOZAPINE
     Dosage: UNK
     Route: 048
     Dates: start: 20090714, end: 20090930
  6. ZAPONEX [Suspect]
     Active Substance: CLOZAPINE
     Dosage: UNK
     Route: 048
     Dates: start: 20091008, end: 20141215

REACTIONS (12)
  - Back pain [Unknown]
  - Neutrophil count decreased [Unknown]
  - Pain [Unknown]
  - Cold sweat [Unknown]
  - White blood cell count increased [Not Recovered/Not Resolved]
  - Metastatic renal cell carcinoma [Fatal]
  - Platelet count increased [Recovered/Resolved]
  - Disease progression [Fatal]
  - Urosepsis [Unknown]
  - Urinary retention [Unknown]
  - Escherichia infection [Unknown]
  - Neutrophil count increased [Recovered/Resolved]

NARRATIVE: CASE EVENT DATE: 20141014
